FAERS Safety Report 19465851 (Version 1)
Quarter: 2021Q2

REPORT INFORMATION
  Report Type: Spontaneous
  Country: US (occurrence: US)
  Receive Date: 20210627
  Receipt Date: 20210627
  Transmission Date: 20210717
  Serious: No
  Sender: FDA-Public Use
  Company Number: US-CELGENEUS-USA-20210607399

PATIENT
  Age: 79 Year
  Sex: Male

DRUGS (2)
  1. REVLIMID [Suspect]
     Active Substance: LENALIDOMIDE
     Indication: CUTANEOUS T-CELL LYMPHOMA
     Dosage: 10 MILLIGRAM
     Route: 048
     Dates: start: 20210526
  2. REVLIMID [Suspect]
     Active Substance: LENALIDOMIDE
     Indication: OFF LABEL USE

REACTIONS (2)
  - Adverse drug reaction [Unknown]
  - Product dose omission issue [Unknown]

NARRATIVE: CASE EVENT DATE: 20210527
